FAERS Safety Report 9262448 (Version 1)
Quarter: 2013Q2

REPORT INFORMATION
  Report Type: Spontaneous
  Country: US (occurrence: None)
  Receive Date: 20130426
  Receipt Date: 20130426
  Transmission Date: 20140414
  Serious: Yes (Death)
  Sender: FDA-Public Use
  Company Number: None

PATIENT
  Age: 96 Year
  Sex: Male

DRUGS (1)
  1. ZYTIGA [Suspect]
     Indication: PERITONEAL HAEMORRHAGE
     Dosage: 4 TABLETS, DAILY, ORAL
     Route: 048
     Dates: start: 20121207, end: 20130320

REACTIONS (1)
  - Death [None]
